FAERS Safety Report 8507011-5 (Version None)
Quarter: 2012Q3

REPORT INFORMATION
  Report Type: 
  Country: None (occurrence: None)
  Receive Date: 20120712
  Receipt Date: 20120705
  Transmission Date: 20120928
  Serious: Yes (Hospitalization)
  Sender: FDA-Public Use
  Company Number: CA-UCBSA-061150

PATIENT
  Age: 50 Year
  Sex: Female
  Weight: 52 kg

DRUGS (6)
  1. CALCIUM [Concomitant]
     Dosage: UNKNOWN
  2. MEPERIDINE HCL [Concomitant]
     Dosage: UNKNOWN
  3. PANTOPRAZOLE SODIUM [Concomitant]
     Dosage: ENTERICCOATED TABLET
  4. CIMZIA [Suspect]
     Dosage: SOLUTION SUBCUTANEOUS
     Route: 058
  5. D-TABS [Concomitant]
     Dosage: 10000 UNITS
  6. LOVENOX [Concomitant]
     Dosage: SOLUTION SUBCUTANEOUS
     Route: 058

REACTIONS (1)
  - HEADACHE [None]
